FAERS Safety Report 12241115 (Version 1)
Quarter: 2016Q2

REPORT INFORMATION
  Report Type: Spontaneous
  Country: US (occurrence: None)
  Receive Date: 20160405
  Receipt Date: 20160405
  Transmission Date: 20160815
  Serious: Yes (Hospitalization, Other)
  Sender: FDA-Public Use
  Company Number: None

PATIENT
  Age: 28 Year
  Sex: Female
  Weight: 90.72 kg

DRUGS (1)
  1. PARAGARD T 380A [Suspect]
     Active Substance: COPPER
     Indication: CONTRACEPTION
     Dates: start: 20120420, end: 20150909

REACTIONS (4)
  - Pregnancy with contraceptive device [None]
  - Menorrhagia [None]
  - Ectopic pregnancy [None]
  - Pain [None]

NARRATIVE: CASE EVENT DATE: 20150910
